FAERS Safety Report 8474694-8 (Version None)
Quarter: 2012Q2

REPORT INFORMATION
  Report Type: 
  Country: None (occurrence: None)
  Receive Date: 20120628
  Receipt Date: 20120620
  Transmission Date: 20120825
  Serious: Yes (Other)
  Sender: FDA-Public Use
  Company Number: US-PFIZER INC-2012153545

PATIENT
  Sex: Female
  Weight: 87.528 kg

DRUGS (7)
  1. KLOR-CON [Concomitant]
     Dosage: 3 TABLETS OF 8 MEQ, DAILY
     Route: 048
  2. LISINOPRIL [Concomitant]
     Indication: HYPERTENSION
     Dosage: 20/25 MG DAILY
  3. LASIX [Concomitant]
     Indication: BURNING SENSATION
     Dosage: UNK
     Dates: start: 20110101
  4. CRESTOR [Concomitant]
     Dosage: 20 MG, DAILY
  5. GABAPENTIN [Suspect]
     Indication: BURNING SENSATION
     Dosage: UNK
     Dates: start: 20110101
  6. SYNTHROID [Concomitant]
     Dosage: 75 UG, DAILY
  7. VITAMIN D [Concomitant]
     Dosage: 2000 IU, DAILY

REACTIONS (2)
  - BACK DISORDER [None]
  - DRUG INEFFECTIVE [None]
